FAERS Safety Report 21836498 (Version 1)
Quarter: 2023Q1

REPORT INFORMATION
  Report Type: Spontaneous
  Country: DE (occurrence: DE)
  Receive Date: 20230109
  Receipt Date: 20230109
  Transmission Date: 20230417
  Serious: No
  Sender: FDA-Public Use
  Company Number: DE-ALKEM LABORATORIES LIMITED-DE-ALKEM-2022-12012

PATIENT
  Sex: Female

DRUGS (2)
  1. IBUPROFEN [Suspect]
     Active Substance: IBUPROFEN
     Indication: Abdominal pain
     Dosage: UNK
     Route: 065
     Dates: start: 20221008, end: 20221008
  2. COMIRNATY [Suspect]
     Active Substance: TOZINAMERAN
     Indication: COVID-19 immunisation
     Dosage: UNK (TOTAL)
     Route: 065
     Dates: start: 20221008, end: 20221008

REACTIONS (2)
  - Lymphadenopathy [Unknown]
  - Malaise [Unknown]

NARRATIVE: CASE EVENT DATE: 20221008
